FAERS Safety Report 6114481-9 (Version None)
Quarter: 2009Q1

REPORT INFORMATION
  Report Type: 
  Country: None (occurrence: None)
  Receive Date: 20090313
  Receipt Date: 20090310
  Transmission Date: 20090719
  Serious: Yes (Death, Other)
  Sender: FDA-Public Use
  Company Number: GB-BAYER-200812445BNE

PATIENT
  Age: 7 Year
  Sex: Male

DRUGS (4)
  1. KOGENATE [Suspect]
     Indication: HAEMOPHILIA
     Dates: start: 20070301, end: 20080711
  2. FEIBA [Suspect]
     Indication: DRUG USE FOR UNKNOWN INDICATION
     Dates: start: 20080101
  3. OROMORPH [Concomitant]
     Indication: ANALGESIA
     Route: 048
  4. TRANEXAMIC ACID [Concomitant]
     Indication: PROCOAGULANT THERAPY
     Dosage: TOTAL DAILY DOSE: 1.5 G
     Route: 048

REACTIONS (2)
  - FACTOR VIII INHIBITION [None]
  - PNEUMONIA [None]
